FAERS Safety Report 15729152 (Version 1)
Quarter: 2018Q4

REPORT INFORMATION
  Report Type: Spontaneous
  Country: US (occurrence: US)
  Receive Date: 20181130
  Receipt Date: 20181130
  Transmission Date: 20190205
  Serious: Yes (Hospitalization)
  Sender: FDA-Public Use
  Company Number: None

PATIENT
  Sex: Female
  Weight: 77.6 kg

DRUGS (4)
  1. DOXORUBICIN HYDROCHLORIDE. [Suspect]
     Active Substance: DOXORUBICIN HYDROCHLORIDE
     Dates: end: 20180911
  2. CARBOPLATIN (241240) [Suspect]
     Active Substance: CARBOPLATIN
     Dates: end: 20181113
  3. CYCLOPHOSPHAMI [Suspect]
     Active Substance: CYCLOPHOSPHAMIDE
     Dates: end: 20180911
  4. PACLITAXEL. [Suspect]
     Active Substance: PACLITAXEL
     Dates: end: 20181113

REACTIONS (4)
  - Dyspnoea [None]
  - Nausea [None]
  - Troponin increased [None]
  - Decreased appetite [None]
